FAERS Safety Report 8626655 (Version 3)
Quarter: 2012Q4

REPORT INFORMATION
  Report Type: 
  Country: IN (occurrence: IN)
  Receive Date: 20120620
  Receipt Date: 20120928
  Transmission Date: 20130627
  Serious: Yes (Death)
  Sender: FDA-Public Use
  Company Number: PHHY2012IN052325

PATIENT
  Age: 102 Year
  Sex: Male

DRUGS (1)
  1. EXELON PATCH [Suspect]
     Indication: DEMENTIA ALZHEIMER^S TYPE
     Route: 062
     Dates: start: 201201

REACTIONS (2)
  - Cardiac arrest [Fatal]
  - Cardiac failure congestive [Fatal]
